FAERS Safety Report 7508435-5 (Version None)
Quarter: 2011Q2

REPORT INFORMATION
  Report Type: 
  Country: None (occurrence: None)
  Receive Date: 20110527
  Receipt Date: 20110523
  Transmission Date: 20111010
  Serious: No
  Sender: FDA-Public Use
  Company Number: US-PFIZER INC-2011111263

PATIENT
  Sex: Female
  Weight: 61.224 kg

DRUGS (3)
  1. AROMASIN [Suspect]
     Indication: BREAST CANCER
     Dosage: 25 MG, UNK
     Route: 048
     Dates: start: 20110514, end: 20110519
  2. CALCIUM [Concomitant]
     Dosage: UNK
  3. VITAMIN D [Concomitant]
     Dosage: UNK

REACTIONS (11)
  - FATIGUE [None]
  - ILL-DEFINED DISORDER [None]
  - HOT FLUSH [None]
  - CONSTIPATION [None]
  - FLUSHING [None]
  - INSOMNIA [None]
  - HEADACHE [None]
  - FEELING ABNORMAL [None]
  - DIARRHOEA [None]
  - ARTHRALGIA [None]
  - CHILLS [None]
